FAERS Safety Report 7314713-5 (Version None)
Quarter: 2011Q1

REPORT INFORMATION
  Report Type: 
  Country: None (occurrence: None)
  Receive Date: 20110225
  Receipt Date: 20101129
  Transmission Date: 20110831
  Serious: No
  Sender: FDA-Public Use
  Company Number: US-MYLANLABS-2010S1020973

PATIENT
  Age: 24 Year
  Sex: Female
  Weight: 50 kg

DRUGS (7)
  1. DAYQUIL [Suspect]
  2. ACETAMINOPHEN [Suspect]
  3. AMNESTEEM [Suspect]
     Dates: start: 20101101
  4. ALCOHOL [Suspect]
  5. ISOTRETINOIN [Suspect]
     Indication: ACNE
     Dates: start: 20100701, end: 20101001
  6. ISOTRETINOIN [Suspect]
     Dates: start: 20101101
  7. AMNESTEEM [Suspect]
     Indication: ACNE
     Dates: start: 20100701, end: 20101001

REACTIONS (2)
  - LIVER FUNCTION TEST ABNORMAL [None]
  - TRANSAMINASES INCREASED [None]
